FAERS Safety Report 9782139 (Version 1)
Quarter: 2013Q4

REPORT INFORMATION
  Report Type: Other
  Country: IT (occurrence: IT)
  Receive Date: 20131226
  Receipt Date: 20131226
  Transmission Date: 20140711
  Serious: Yes (Hospitalization)
  Sender: FDA-Public Use
  Company Number: IT-BRISTOL-MYERS SQUIBB COMPANY-19945344

PATIENT
  Age: 76 Year
  Sex: Male

DRUGS (2)
  1. METFORMIN HCL [Suspect]
  2. LEVOFLOXACIN [Suspect]

REACTIONS (4)
  - Toxicity to various agents [Unknown]
  - Lactic acidosis [Unknown]
  - Hypoglycaemia [Unknown]
  - Tubulointerstitial nephritis [Unknown]
